FAERS Safety Report 5553328-6 (Version None)
Quarter: 2007Q4

REPORT INFORMATION
  Report Type: 
  Country: None (occurrence: None)
  Receive Date: 20071213
  Receipt Date: 20071210
  Transmission Date: 20080405
  Serious: Yes (Life-Threatening, Hospitalization, Other)
  Sender: FDA-Public Use
  Company Number: US-RB-008297-07

PATIENT
  Sex: Male
  Weight: 81.45 kg

DRUGS (6)
  1. SUBOXONE [Suspect]
     Route: 060
  2. ROBAXIN [Concomitant]
  3. LISINOPRIL [Concomitant]
     Indication: HYPERTENSION
     Dosage: 20-40 MG A DAY
  4. HYDROCHLOROTHIAZIDE [Concomitant]
     Indication: HYPERTENSION
  5. ATENOLOL [Concomitant]
     Indication: HYPERTENSION
  6. PRILOSEC [Concomitant]
     Dosage: 20-40 MG A DAY

REACTIONS (3)
  - PAIN [None]
  - RENAL FAILURE [None]
  - RHABDOMYOLYSIS [None]
